FAERS Safety Report 23188102 (Version 5)
Quarter: 2024Q2

REPORT INFORMATION
  Report Type: Spontaneous
  Country: US (occurrence: US)
  Receive Date: 20231115
  Receipt Date: 20240508
  Transmission Date: 20240716
  Serious: No
  Sender: FDA-Public Use
  Company Number: US-PFIZER INC-PV202300182040

PATIENT
  Age: 76 Year
  Sex: Female

DRUGS (1)
  1. IBRANCE [Suspect]
     Active Substance: PALBOCICLIB
     Indication: Breast cancer metastatic
     Dosage: 125 MG, Q. DAY X 21 DAYS EVERY 28 DAYS
     Route: 048

REACTIONS (3)
  - Alopecia [Unknown]
  - Nausea [Unknown]
  - Confusional state [Unknown]
